FAERS Safety Report 21121688 (Version 3)
Quarter: 2022Q3

REPORT INFORMATION
  Report Type: Spontaneous
  Country: BR (occurrence: BR)
  Receive Date: 20220722
  Receipt Date: 20220818
  Transmission Date: 20221026
  Serious: Yes (Hospitalization, Other)
  Sender: FDA-Public Use
  Company Number: BR-TAKEDA-2022TUS047837

PATIENT
  Sex: Female
  Weight: 52 kg

DRUGS (2)
  1. LISDEXAMFETAMINE DIMESYLATE [Suspect]
     Active Substance: LISDEXAMFETAMINE DIMESYLATE
     Indication: Attention deficit hyperactivity disorder
     Dosage: 1 DOSAGE FORM, QD
     Route: 048
     Dates: start: 20220708, end: 20220711
  2. DESVENLAFAXINE [Concomitant]
     Active Substance: DESVENLAFAXINE
     Indication: Product used for unknown indication
     Dosage: 100 MILLIGRAM
     Route: 065

REACTIONS (12)
  - Adverse drug reaction [Unknown]
  - Near death experience [Unknown]
  - Drug ineffective [Unknown]
  - Feeling abnormal [Unknown]
  - Nervous system disorder [Unknown]
  - Panic attack [Unknown]
  - Bruxism [Unknown]
  - Asthenia [Unknown]
  - Dyspnoea [Unknown]
  - Tremor [Unknown]
  - Decreased appetite [Unknown]
  - Insomnia [Unknown]
